FAERS Safety Report 6917414-8 (Version None)
Quarter: 2010Q3

REPORT INFORMATION
  Report Type: 
  Country: None (occurrence: None)
  Receive Date: 20100810
  Receipt Date: 20100723
  Transmission Date: 20110219
  Serious: Yes (Hospitalization)
  Sender: FDA-Public Use
  Company Number: PHHY2010DE49493

PATIENT
  Age: 69 Year
  Sex: Female

DRUGS (7)
  1. ZOLEDRONIC ACID [Suspect]
     Indication: BREAST CANCER
     Dosage: UNK
     Route: 042
  2. PAMIDRONATE DISODIUM [Suspect]
     Indication: BREAST CANCER
     Dosage: UNK
     Route: 042
  3. AMOXICILLIN [Concomitant]
     Dosage: 500 MG, UNK
  4. CLAVULANATE POTASSIUM [Concomitant]
     Dosage: 125 MG, TID
     Route: 048
  5. HEXETIDINE [Concomitant]
     Dosage: UNK, THREE TIMES A DAY
  6. IBUPROFEN [Concomitant]
     Indication: ANALGESIC THERAPY
     Dosage: 600 MG, TID
  7. ANAESTHETICS [Concomitant]

REACTIONS (4)
  - BONE DISORDER [None]
  - OSTEONECROSIS OF JAW [None]
  - OSTEOTOMY [None]
  - WOUND CLOSURE [None]
